FAERS Safety Report 17870385 (Version 1)
Quarter: 2020Q2

REPORT INFORMATION
  Report Type: Spontaneous
  Country: FR (occurrence: FR)
  Receive Date: 20200608
  Receipt Date: 20200608
  Transmission Date: 20200714
  Serious: Yes (Hospitalization)
  Sender: FDA-Public Use
  Company Number: FR-TEVA-2020-FR-1244848

PATIENT
  Age: 81 Year
  Sex: Female
  Weight: 72.7 kg

DRUGS (3)
  1. COUMADINE 2 MG, COMPRIME SECABLE [Interacting]
     Active Substance: WARFARIN SODIUM
     Indication: ATRIAL FIBRILLATION
     Dosage: 1.5 DOSAGE FORMS
     Route: 048
     Dates: end: 201910
  2. METHYLPREDNISOLONE. [Interacting]
     Active Substance: METHYLPREDNISOLONE
     Indication: PNEUMONIA
     Dosage: 20 MG
     Route: 042
     Dates: start: 201909, end: 20191005
  3. PREDNISOLONE. [Suspect]
     Active Substance: PREDNISOLONE
     Indication: PNEUMONIA
     Dosage: 20 MG
     Route: 048
     Dates: start: 20191005, end: 20191010

REACTIONS (4)
  - Anaemia [Recovered/Resolved]
  - Peptic ulcer [Recovered/Resolved]
  - Drug interaction [Recovered/Resolved]
  - Gastrointestinal haemorrhage [Recovered/Resolved]

NARRATIVE: CASE EVENT DATE: 201910
